FAERS Safety Report 11552292 (Version 1)
Quarter: 2015Q3

REPORT INFORMATION
  Report Type: Spontaneous
  Country: CA (occurrence: CA)
  Receive Date: 20150925
  Receipt Date: 20150925
  Transmission Date: 20151125
  Serious: Yes (Other)
  Sender: FDA-Public Use
  Company Number: CA-TEVA-595493ACC

PATIENT
  Age: 21 Month
  Sex: Male

DRUGS (1)
  1. AMOXICILLIN. [Suspect]
     Active Substance: AMOXICILLIN
     Indication: EAR INFECTION
     Dosage: 25.5 ML DAILY;
     Route: 065

REACTIONS (3)
  - Cough [Unknown]
  - Drooling [Unknown]
  - Choking [Unknown]
